FAERS Safety Report 9490227 (Version 2)
Quarter: 2013Q4

REPORT INFORMATION
  Report Type: Spontaneous
  Country: US (occurrence: US)
  Receive Date: 20130830
  Receipt Date: 20131003
  Transmission Date: 20140711
  Serious: No
  Sender: FDA-Public Use
  Company Number: US-BIOGENIDEC-2013BI079057

PATIENT
  Age: 47 Year
  Sex: Male
  Weight: 103 kg

DRUGS (14)
  1. TYSABRI [Suspect]
     Indication: MULTIPLE SCLEROSIS
     Route: 042
     Dates: start: 20121115
  2. AMPYRA [Concomitant]
  3. ANDROGEL [Concomitant]
  4. FOLATE [Concomitant]
  5. PRILOSEC [Concomitant]
  6. AMBIEN [Concomitant]
  7. PROVIGIL [Concomitant]
  8. VIT D [Concomitant]
  9. LOSARTAN POTASSIUM [Concomitant]
  10. BACLOFEN [Concomitant]
  11. NEURONTIN [Concomitant]
  12. ADVAIR DISKUS [Concomitant]
  13. ARICEPT [Concomitant]
  14. ARICEPT [Concomitant]
     Dates: start: 20130822

REACTIONS (8)
  - Memory impairment [Not Recovered/Not Resolved]
  - White matter lesion [Unknown]
  - Back pain [Not Recovered/Not Resolved]
  - Bladder disorder [Unknown]
  - Muscle spasms [Unknown]
  - Dyspnoea [Unknown]
  - Drug ineffective [Unknown]
  - Fatigue [Unknown]
